FAERS Safety Report 10495879 (Version 1)
Quarter: 2014Q4

REPORT INFORMATION
  Report Type: Spontaneous
  Country: FR (occurrence: FR)
  Receive Date: 20141003
  Receipt Date: 20141003
  Transmission Date: 20150528
  Serious: Yes (Other)
  Sender: FDA-Public Use
  Company Number: FR-PFIZER INC-2014269836

PATIENT
  Age: 57 Year
  Sex: Male

DRUGS (2)
  1. SUTENT [Suspect]
     Active Substance: SUNITINIB MALATE
     Dosage: 25 MG, 1X/DAY
  2. PREVISCAN [Concomitant]
     Active Substance: FLUINDIONE
     Indication: ANTICOAGULANT THERAPY

REACTIONS (10)
  - Epistaxis [Unknown]
  - Rash [Unknown]
  - Skin disorder [Unknown]
  - Eye disorder [Unknown]
  - Feeding disorder [Unknown]
  - Abdominal distension [Unknown]
  - Gingival pain [Unknown]
  - Nasal dryness [Unknown]
  - Negative thoughts [Unknown]
  - Abasia [Unknown]

NARRATIVE: CASE EVENT DATE: 20140930
